FAERS Safety Report 11857165 (Version 3)
Quarter: 2016Q2

REPORT INFORMATION
  Report Type: Spontaneous
  Country: US (occurrence: US)
  Receive Date: 20151221
  Receipt Date: 20160506
  Transmission Date: 20160815
  Serious: No
  Sender: FDA-Public Use
  Company Number: US-PFIZER INC-2015422507

PATIENT
  Age: 83 Year
  Sex: Female
  Weight: 43 kg

DRUGS (6)
  1. CALCIUM + VIT D [Concomitant]
     Active Substance: CALCIUM\VITAMIN D
  2. LYRICA [Suspect]
     Active Substance: PREGABALIN
     Indication: HERPES ZOSTER
  3. ARIMIDEX [Concomitant]
     Active Substance: ANASTROZOLE
     Dosage: UNK
     Dates: start: 20151119
  4. LYRICA [Suspect]
     Active Substance: PREGABALIN
     Indication: POST HERPETIC NEURALGIA
     Dosage: 75 MG, 2X/DAY
     Route: 048
     Dates: start: 20151125
  5. PREDNISONE. [Suspect]
     Active Substance: PREDNISONE
     Dosage: 6, 2X/DAY
  6. TAMOXIFEN [Concomitant]
     Active Substance: TAMOXIFEN
     Indication: PROPHYLAXIS
     Dosage: 20 MG, DAILY
     Dates: start: 20140805

REACTIONS (13)
  - Drug prescribing error [Unknown]
  - Confusional state [Not Recovered/Not Resolved]
  - Decreased appetite [Unknown]
  - Ataxia [Recovered/Resolved]
  - Fatigue [Unknown]
  - Headache [Unknown]
  - Memory impairment [Not Recovered/Not Resolved]
  - Paraesthesia [Unknown]
  - Lethargy [Recovered/Resolved]
  - Disturbance in attention [Unknown]
  - Visual impairment [Unknown]
  - Incorrect dose administered [Recovered/Resolved with Sequelae]
  - Abnormal behaviour [Unknown]

NARRATIVE: CASE EVENT DATE: 20151125
